FAERS Safety Report 13726721 (Version 2)
Quarter: 2017Q3

REPORT INFORMATION
  Report Type: Spontaneous
  Country: ES (occurrence: ES)
  Receive Date: 20170706
  Receipt Date: 20170822
  Transmission Date: 20171127
  Serious: Yes (Other)
  Sender: FDA-Public Use
  Company Number: ES-IMPAX LABORATORIES, INC-2017-IPXL-01943

PATIENT
  Age: 54 Year
  Sex: Male

DRUGS (2)
  1. ACARBOSE. [Suspect]
     Active Substance: ACARBOSE
     Indication: TYPE 2 DIABETES MELLITUS
     Dosage: 50 DF, DAILY, 2 MG/DAY
     Route: 048
  2. ACARBOSE. [Suspect]
     Active Substance: ACARBOSE
     Dosage: 50 DF, DAILY, 2 MG/DAY
     Route: 048

REACTIONS (2)
  - Colitis microscopic [Recovered/Resolved]
  - Weight decreased [Recovered/Resolved]
